FAERS Safety Report 13565907 (Version 1)
Quarter: 2017Q2

REPORT INFORMATION
  Report Type: Spontaneous
  Country: DE (occurrence: DE)
  Receive Date: 20170520
  Receipt Date: 20170520
  Transmission Date: 20170830
  Serious: Yes (Other)
  Sender: FDA-Public Use
  Company Number: DE-ACCORD-051680

PATIENT
  Age: 71 Year
  Sex: Female

DRUGS (2)
  1. MITOMYCIN. [Suspect]
     Active Substance: MITOMYCIN
     Indication: GLAUCOMA
  2. OLOGEN [Suspect]
     Active Substance: DEVICE
     Indication: GLAUCOMA

REACTIONS (5)
  - Conjunctival disorder [None]
  - Atrophy [Unknown]
  - Blebitis [None]
  - Inflammation [Unknown]
  - Vitreous injury [Unknown]
